FAERS Safety Report 7270674-9 (Version None)
Quarter: 2011Q1

REPORT INFORMATION
  Report Type: 
  Country: None (occurrence: None)
  Receive Date: 20110202
  Receipt Date: 20110202
  Transmission Date: 20110831
  Serious: Yes (Hospitalization, Disabling, Congenital Anomaly)
  Sender: FDA-Public Use
  Company Number: B0351170A

PATIENT

DRUGS (5)
  1. LUSTRAL [Concomitant]
     Route: 048
  2. ASPIRIN [Concomitant]
     Indication: ANTICOAGULANT THERAPY
     Dosage: 75MG PER DAY
     Route: 048
     Dates: start: 20010601, end: 20040101
  3. COMBIVIR [Suspect]
     Indication: HIV INFECTION
     Dosage: 1UNIT TWICE PER DAY
     Route: 064
     Dates: start: 20040329, end: 20040813
  4. KALETRA [Suspect]
     Dosage: 3UNIT TWICE PER DAY
     Route: 064
  5. FERROUS SULFATE TAB [Concomitant]
     Route: 048

REACTIONS (2)
  - DRUG EXPOSURE DURING PREGNANCY [None]
  - TALIPES [None]
